FAERS Safety Report 9371589 (Version 1)
Quarter: 2013Q2

REPORT INFORMATION
  Report Type: Spontaneous
  Country: ES (occurrence: ES)
  Receive Date: 20130627
  Receipt Date: 20130627
  Transmission Date: 20140414
  Serious: Yes (Hospitalization)
  Sender: FDA-Public Use
  Company Number: ES-MYLANLABS-2013S1013242

PATIENT
  Age: 47 Year
  Sex: Male

DRUGS (4)
  1. CLOZAPINE [Suspect]
     Indication: SCHIZOPHRENIA, PARANOID TYPE
     Dosage: (AT ADMISSION) 600 MG/DAY
     Route: 065
  2. BIPERIDEN [Suspect]
     Dosage: 4 MG/DAY
     Route: 065
  3. LORAZEPAM [Suspect]
     Dosage: 15 MG/DAY
     Route: 065
  4. RISPERIDONE [Concomitant]
     Indication: SCHIZOPHRENIA, PARANOID TYPE
     Dosage: (AT ADMISSION) 8 MG/DAY
     Route: 065

REACTIONS (1)
  - Colitis ischaemic [Unknown]
